FAERS Safety Report 25823762 (Version 1)
Quarter: 2025Q3

REPORT INFORMATION
  Report Type: Spontaneous
  Country: US (occurrence: None)
  Receive Date: 20250918
  Receipt Date: 20250918
  Transmission Date: 20251020
  Serious: Yes (Other)
  Sender: FDA-CTU
  Company Number: None

PATIENT
  Age: 37 Year
  Sex: Female
  Weight: 54 kg

DRUGS (1)
  1. KETOROLAC [Suspect]
     Active Substance: KETOROLAC TROMETHAMINE
     Indication: Pain

REACTIONS (4)
  - Drug ineffective [None]
  - Product prescribing issue [None]
  - Product prescribing issue [None]
  - Product label issue [None]

NARRATIVE: CASE EVENT DATE: 20231119
